FAERS Safety Report 5577634-4 (Version None)
Quarter: 2007Q4

REPORT INFORMATION
  Report Type: 
  Country: None (occurrence: None)
  Receive Date: 20071231
  Receipt Date: 20071221
  Transmission Date: 20080405
  Serious: Yes (Hospitalization)
  Sender: FDA-Public Use
  Company Number: PHBS2007IT21376

PATIENT
  Age: 34 Year
  Sex: Male

DRUGS (1)
  1. FAMVIR [Suspect]
     Indication: HERPES ZOSTER
     Dosage: 750/D
     Route: 048
     Dates: start: 20071203, end: 20071205

REACTIONS (4)
  - ANGER [None]
  - DIARRHOEA [None]
  - HALLUCINATION [None]
  - TACHYCARDIA [None]
